FAERS Safety Report 6166991-6 (Version None)
Quarter: 2009Q2

REPORT INFORMATION
  Report Type: 
  Country: None (occurrence: None)
  Receive Date: 20090423
  Receipt Date: 20090423
  Transmission Date: 20091009
  Serious: Yes (Hospitalization, Disabling)
  Sender: FDA-Public Use
  Company Number: None

PATIENT
  Age: 64 Year
  Sex: Female
  Weight: 56.6996 kg

DRUGS (11)
  1. LEVAQUIN [Suspect]
     Indication: INCISION SITE INFECTION
     Dosage: 500 MG ONCE/ DAY PO
     Route: 048
     Dates: start: 20081213, end: 20081219
  2. LEVAQUIN [Suspect]
     Indication: PNEUMONIA
     Dosage: 500 MG ONCE/ DAY PO
     Route: 048
     Dates: start: 20081213, end: 20081219
  3. LEVAQUIN [Suspect]
     Indication: INCISION SITE INFECTION
     Dosage: 500 MG ONCE/ DAY PO
     Route: 048
     Dates: start: 20090212, end: 20090221
  4. LEVAQUIN [Suspect]
     Indication: PNEUMONIA
     Dosage: 500 MG ONCE/ DAY PO
     Route: 048
     Dates: start: 20090212, end: 20090221
  5. PREDNISONE [Concomitant]
  6. LEVOXYL [Concomitant]
  7. ATENOLOL [Concomitant]
  8. HYDROXYCHLOROQUINE SULFATE [Concomitant]
  9. DIFLUNISAL [Concomitant]
  10. MULTI-VITAMIN [Concomitant]
  11. CALCIUM [Concomitant]

REACTIONS (2)
  - TENDON RUPTURE [None]
  - TENDONITIS [None]
